FAERS Safety Report 16841278 (Version 2)
Quarter: 2019Q3

REPORT INFORMATION
  Report Type: Spontaneous
  Country: US (occurrence: US)
  Receive Date: 20190923
  Receipt Date: 20190924
  Transmission Date: 20191005
  Serious: No
  Sender: FDA-Public Use
  Company Number: US-009507513-1909USA008351

PATIENT
  Sex: Male
  Weight: 83.91 kg

DRUGS (1)
  1. EMEND [Suspect]
     Active Substance: APREPITANT
     Route: 048

REACTIONS (5)
  - Erythema [Unknown]
  - Drug hypersensitivity [Unknown]
  - Back pain [Unknown]
  - Pharyngeal swelling [Unknown]
  - Feeling abnormal [Unknown]
